FAERS Safety Report 19044273 (Version 3)
Quarter: 2021Q2

REPORT INFORMATION
  Report Type: Report from Study
  Country: CL (occurrence: CL)
  Receive Date: 20210323
  Receipt Date: 20210526
  Transmission Date: 20210717
  Serious: Yes (Hospitalization)
  Sender: FDA-Public Use
  Company Number: CL-BEH-2021129573

PATIENT
  Age: 56 Year
  Sex: Female

DRUGS (1)
  1. PRIVIGEN [Suspect]
     Active Substance: HUMAN IMMUNOGLOBULIN G
     Indication: IMMUNODEFICIENCY COMMON VARIABLE
     Dosage: 30 GRAM EVERY 8 WEEKS
     Route: 042

REACTIONS (11)
  - Traumatic haematoma [Recovering/Resolving]
  - Tooth fracture [Recovering/Resolving]
  - Fatigue [Recovering/Resolving]
  - Syncope [Recovering/Resolving]
  - Joint injury [Recovering/Resolving]
  - Anaemia [Recovering/Resolving]
  - Device related infection [Recovering/Resolving]
  - Fall [Recovering/Resolving]
  - Nail infection [Recovering/Resolving]
  - Dyspnoea [Recovering/Resolving]
  - Limb injury [Recovering/Resolving]

NARRATIVE: CASE EVENT DATE: 20210128
